FAERS Safety Report 4747157-0 (Version None)
Quarter: 2005Q3

REPORT INFORMATION
  Report Type: 
  Country: None (occurrence: None)
  Receive Date: 20050815
  Receipt Date: 20050729
  Transmission Date: 20060218
  Serious: Yes (Hospitalization)
  Sender: FDA-Public Use
  Company Number: US_0508120526

PATIENT
  Age: 72 Year
  Sex: Male
  Weight: 45 kg

DRUGS (2)
  1. TERIPARATIDE [Suspect]
  2. WARFARIN [Concomitant]

REACTIONS (7)
  - ATRIAL FIBRILLATION [None]
  - BLOOD ALBUMIN DECREASED [None]
  - HAEMATOCRIT DECREASED [None]
  - HAEMOGLOBIN DECREASED [None]
  - INTERNATIONAL NORMALISED RATIO DECREASED [None]
  - ORAL INTAKE REDUCED [None]
  - SYNCOPE [None]
